FAERS Safety Report 6666703-3 (Version None)
Quarter: 2010Q2

REPORT INFORMATION
  Report Type: 
  Country: None (occurrence: None)
  Receive Date: 20100405
  Receipt Date: 20100324
  Transmission Date: 20101027
  Serious: Yes (Other)
  Sender: FDA-Public Use
  Company Number: US-JNJFOC-20061006161

PATIENT
  Sex: Male

DRUGS (11)
  1. RISPERDAL [Suspect]
     Indication: DEPRESSION
  2. RISPERDAL [Suspect]
  3. RISPERDAL [Suspect]
     Indication: ANXIETY
  4. RISPERDAL [Suspect]
  5. RISPERDAL [Suspect]
     Indication: SCHIZOAFFECTIVE DISORDER
  6. RISPERDAL [Suspect]
  7. SEROQUEL [Suspect]
     Indication: DEPRESSION
  8. PAXIL [Concomitant]
  9. RITALIN [Concomitant]
  10. WELLBUTRIN [Concomitant]
  11. REMERON [Concomitant]

REACTIONS (8)
  - DIZZINESS [None]
  - EXTRAPYRAMIDAL DISORDER [None]
  - MUSCLE TWITCHING [None]
  - PARAESTHESIA [None]
  - PARKINSONISM [None]
  - SEDATION [None]
  - TYPE 2 DIABETES MELLITUS [None]
  - WEIGHT INCREASED [None]
